FAERS Safety Report 7737493 (Version 8)
Quarter: 2012Q4

REPORT INFORMATION
  Report Type: Report from Study
  Country: CA (occurrence: CA)
  Receive Date: 20101223
  Receipt Date: 20121207
  Transmission Date: 20130627
  Serious: Yes (Other)
  Sender: FDA-Public Use
  Company Number: CA-ROCHE-GNE311304

PATIENT
  Age: 67 Year
  Sex: Female

DRUGS (1)
  1. XOLAIR [Suspect]
     Indication: ASTHMA
     Dosage: 300 mg, 1/Month
     Route: 058
     Dates: start: 20101124

REACTIONS (9)
  - Respiratory tract infection [Recovered/Resolved]
  - Skin reaction [Unknown]
  - Urticaria [Unknown]
  - Heart rate increased [Unknown]
  - Blood pressure increased [Unknown]
  - Haemoptysis [Unknown]
  - Cough [Unknown]
  - Productive cough [Unknown]
  - Drug hypersensitivity [Unknown]
